FAERS Safety Report 17217630 (Version 4)
Quarter: 2020Q1

REPORT INFORMATION
  Report Type: Spontaneous
  Country: US (occurrence: US)
  Receive Date: 20191231
  Receipt Date: 20200330
  Transmission Date: 20200409
  Serious: No
  Sender: FDA-Public Use
  Company Number: US-INDIVIOR US-INDV-122398-2019

PATIENT
  Sex: Male

DRUGS (3)
  1. SUBLOCADE [Suspect]
     Active Substance: BUPRENORPHINE
     Indication: PRODUCT USED FOR UNKNOWN INDICATION
     Dosage: 300MG, QMO (FIRST AND SECOND INJECTIONS))
     Route: 058
     Dates: start: 201908, end: 201910
  2. SUBLOCADE [Suspect]
     Active Substance: BUPRENORPHINE
     Dosage: 300MG, QMO (FOURTH INJECTION)
     Route: 030
     Dates: start: 20191105
  3. SUBLOCADE [Suspect]
     Active Substance: BUPRENORPHINE
     Indication: PRODUCT USED FOR UNKNOWN INDICATION
     Dosage: 100MG, QMO (THIRD INJECTION)
     Route: 058
     Dates: start: 201910, end: 201911

REACTIONS (13)
  - Injection site pain [Not Recovered/Not Resolved]
  - Injection site bruising [Not Recovered/Not Resolved]
  - Hyperhidrosis [Not Recovered/Not Resolved]
  - Nausea [Not Recovered/Not Resolved]
  - Therapeutic response shortened [Recovered/Resolved]
  - Gait disturbance [Unknown]
  - Drug withdrawal syndrome [Not Recovered/Not Resolved]
  - Restlessness [Unknown]
  - Back pain [Not Recovered/Not Resolved]
  - Product use issue [Recovered/Resolved]
  - Injection site haemorrhage [Unknown]
  - Vomiting [Not Recovered/Not Resolved]
  - Discomfort [Not Recovered/Not Resolved]

NARRATIVE: CASE EVENT DATE: 2019
